FAERS Safety Report 4862084-6 (Version None)
Quarter: 2005Q4

REPORT INFORMATION
  Report Type: 
  Country: None (occurrence: None)
  Receive Date: 20051130
  Receipt Date: 20050103
  Transmission Date: 20060501
  Serious: Yes (Hospitalization)
  Sender: FDA-Public Use
  Company Number: PHEH2004US12816

PATIENT
  Age: 47 Year
  Sex: Female
  Weight: 60.3 kg

DRUGS (3)
  1. LAMISIL [Suspect]
     Indication: NAIL TINEA
     Dosage: 250 MG, QD, ORAL
     Route: 048
     Dates: start: 20030201, end: 20030301
  2. EFFEXOR [Concomitant]
  3. YASMIN (DROSPIRENONONE, ETHINYLESTRADIOL) [Concomitant]

REACTIONS (3)
  - PHARYNGEAL OEDEMA [None]
  - SWELLING FACE [None]
  - URTICARIA [None]
